FAERS Safety Report 6819400-5 (Version None)
Quarter: 2010Q3

REPORT INFORMATION
  Report Type: 
  Country: None (occurrence: None)
  Receive Date: 20100707
  Receipt Date: 20100628
  Transmission Date: 20110219
  Serious: Yes (Death, Other)
  Sender: FDA-Public Use
  Company Number: CN-PFIZER INC-2010080629

PATIENT

DRUGS (1)
  1. ZYVOX [Suspect]
     Indication: INFECTION
     Dosage: UNK
     Route: 041
     Dates: start: 20100601

REACTIONS (2)
  - LUNG INFECTION [None]
  - PLATELET COUNT DECREASED [None]
